FAERS Safety Report 7084169-9 (Version None)
Quarter: 2010Q4

REPORT INFORMATION
  Report Type: 
  Country: None (occurrence: None)
  Receive Date: 20101104
  Receipt Date: 20100621
  Transmission Date: 20110411
  Serious: Yes (Death, Other)
  Sender: FDA-Public Use
  Company Number: US-BAYER-201038732NA

PATIENT
  Age: 89 Year
  Sex: Female

DRUGS (1)
  1. TRASYLOL [Suspect]
     Indication: CORONARY ARTERY BYPASS
     Dates: start: 20020126, end: 20020126

REACTIONS (3)
  - INJURY [None]
  - RENAL FAILURE [None]
  - TRACHEOBRONCHITIS [None]
